FAERS Safety Report 5679980-2 (Version None)
Quarter: 2008Q1

REPORT INFORMATION
  Report Type: 
  Country: None (occurrence: None)
  Receive Date: 20080325
  Receipt Date: 20080325
  Transmission Date: 20080703
  Serious: No
  Sender: FDA-Public Use
  Company Number: None

PATIENT
  Age: 23 Year
  Sex: Female

DRUGS (1)
  1. MIRENA [Suspect]
     Dosage: 5 YR IUD
     Route: 015

REACTIONS (4)
  - HAEMORRHAGE [None]
  - IUD MIGRATION [None]
  - PAIN [None]
  - UTERINE RUPTURE [None]
